FAERS Safety Report 6089252-2 (Version None)
Quarter: 2009Q1

REPORT INFORMATION
  Report Type: 
  Country: None (occurrence: None)
  Receive Date: 20090224
  Receipt Date: 20090212
  Transmission Date: 20090719
  Serious: Yes (Other)
  Sender: FDA-Public Use
  Company Number: US-PFIZER INC-2009169914

PATIENT
  Sex: Female

DRUGS (11)
  1. CHANTIX [Suspect]
     Indication: SMOKING CESSATION THERAPY
     Dosage: 0.5 MG, UNK
     Dates: start: 20090201
  2. LITHIUM [Concomitant]
  3. SYNTHROID [Concomitant]
  4. LIBRAX [Concomitant]
  5. VALIUM [Concomitant]
  6. DARVOCET [Concomitant]
  7. PROMETHAZINE HYDROCHLORIDE [Concomitant]
  8. FERROUS SULFATE [Concomitant]
  9. NEURONTIN [Concomitant]
  10. OXYGEN [Concomitant]
  11. CORTICOSTEROIDS [Concomitant]

REACTIONS (1)
  - MANIA [None]
